FAERS Safety Report 21925230 (Version 1)
Quarter: 2023Q1

REPORT INFORMATION
  Report Type: Spontaneous
  Country: US (occurrence: US)
  Receive Date: 20230130
  Receipt Date: 20230130
  Transmission Date: 20230418
  Serious: Yes (Hospitalization)
  Sender: FDA-Public Use
  Company Number: US-STRIDES ARCOLAB LIMITED-2022SP016919

PATIENT
  Age: 5 Decade
  Sex: Male

DRUGS (3)
  1. CALCITRIOL [Suspect]
     Active Substance: CALCITRIOL
     Indication: Osteomalacia
     Dosage: 0.25 MICROGRAM, BID
     Route: 065
  2. POTASSIUM PHOSPHATE\SODIUM PHOSPHATE [Suspect]
     Active Substance: POTASSIUM PHOSPHATE\SODIUM PHOSPHATE
     Indication: Osteomalacia
     Dosage: 8 MILLIMOLE, 6 TIMES A DAY
     Route: 065
  3. ZOLEDRONIC ACID [Concomitant]
     Active Substance: ZOLEDRONIC ACID
     Indication: Osteitis deformans
     Dosage: UNK
     Route: 065

REACTIONS (1)
  - Drug ineffective for unapproved indication [Unknown]
